FAERS Safety Report 20954750 (Version 1)
Quarter: 2022Q2

REPORT INFORMATION
  Report Type: Spontaneous
  Country: None (occurrence: JP)
  Receive Date: 20220614
  Receipt Date: 20220614
  Transmission Date: 20220721
  Serious: Yes (Other)
  Sender: FDA-Public Use
  Company Number: JP-Acacia Pharma Limited-2129819

PATIENT
  Age: 77 Year
  Sex: Male

DRUGS (1)
  1. BYFAVO [Suspect]
     Active Substance: REMIMAZOLAM BESYLATE
     Indication: General anaesthesia
     Route: 042

REACTIONS (2)
  - Anaphylactic shock [Unknown]
  - Cardio-respiratory arrest [Unknown]
